FAERS Safety Report 22331657 (Version 1)
Quarter: 2023Q2

REPORT INFORMATION
  Report Type: Spontaneous
  Country: US (occurrence: US)
  Receive Date: 20230517
  Receipt Date: 20230517
  Transmission Date: 20230721
  Serious: Yes (Life-Threatening, Hospitalization)
  Sender: FDA-Public Use
  Company Number: US-PFIZER INC-PV202300085119

PATIENT
  Age: 76 Year
  Sex: Female

DRUGS (3)
  1. BUPIVACAINE HYDROCHLORIDE [Suspect]
     Active Substance: BUPIVACAINE HYDROCHLORIDE
     Dosage: 600 MG
     Route: 058
  2. HYDROMORPHONE HYDROCHLORIDE [Suspect]
     Active Substance: HYDROMORPHONE HYDROCHLORIDE
     Dosage: 1200 MG IN 40 ML
     Route: 058
  3. CLONIDINE [Suspect]
     Active Substance: CLONIDINE
     Dosage: 32 MG
     Route: 058

REACTIONS (3)
  - Incorrect route of product administration [Unknown]
  - Bradycardia [Unknown]
  - Unresponsive to stimuli [Not Recovered/Not Resolved]
